FAERS Safety Report 4908282-4 (Version None)
Quarter: 2006Q1

REPORT INFORMATION
  Report Type: 
  Country: None (occurrence: None)
  Receive Date: 20060210
  Receipt Date: 20060130
  Transmission Date: 20060701
  Serious: Yes (Other)
  Sender: FDA-Public Use
  Company Number: US-JNJFOC-20051104156

PATIENT
  Sex: Female
  Weight: 81.65 kg

DRUGS (3)
  1. TOPAMAX [Suspect]
     Route: 048
     Dates: start: 20051104, end: 20051114
  2. PHENTERMINE [Suspect]
  3. SYNTHROID [Concomitant]
     Indication: HYPOTHYROIDISM

REACTIONS (4)
  - ANGLE CLOSURE GLAUCOMA [None]
  - CONJUNCTIVAL DISORDER [None]
  - JAUNDICE [None]
  - PARAESTHESIA [None]
